FAERS Safety Report 7892625-6 (Version None)
Quarter: 2011Q4

REPORT INFORMATION
  Report Type: 
  Country: None (occurrence: None)
  Receive Date: 20111102
  Receipt Date: 20111018
  Transmission Date: 20120403
  Serious: Yes (Life-Threatening)
  Sender: FDA-Public Use
  Company Number: 1000024644

PATIENT
  Sex: Male
  Weight: 3 kg

DRUGS (1)
  1. LEXAPRO [Suspect]
     Dosage: 20 MG (20 MG, 1 IN 1 D),TRANSPLACENTAL
     Route: 064
     Dates: start: 20110501, end: 20110923

REACTIONS (2)
  - FOETAL EXPOSURE DURING PREGNANCY [None]
  - NEONATAL RESPIRATORY DEPRESSION [None]
